FAERS Safety Report 6011711-9 (Version None)
Quarter: 2008Q4

REPORT INFORMATION
  Report Type: 
  Country: None (occurrence: None)
  Receive Date: 20081218
  Receipt Date: 19940107
  Transmission Date: 20090506
  Serious: Yes (Death, Other)
  Sender: FDA-Public Use
  Company Number: US-ROCHE-940270004001

PATIENT
  Age: 40 Year
  Sex: Male

DRUGS (4)
  1. ZALCITABINE [Suspect]
     Indication: HIV INFECTION
     Route: 048
     Dates: start: 19920205, end: 19921201
  2. ZIDOVUDINE [Suspect]
     Indication: HIV INFECTION
     Route: 048
     Dates: start: 19920205, end: 19921201
  3. ENALAPRIL MALEATE [Concomitant]
     Route: 048
  4. PENTAMIDINE [Concomitant]
     Route: 055

REACTIONS (5)
  - ASPARTATE AMINOTRANSFERASE INCREASED [None]
  - COMA [None]
  - FACTOR VIII DEFICIENCY [None]
  - HAEMORRHAGE [None]
  - LIVER DISORDER [None]
